FAERS Safety Report 15726449 (Version 1)
Quarter: 2018Q4

REPORT INFORMATION
  Report Type: Spontaneous
  Country: US (occurrence: US)
  Receive Date: 20181217
  Receipt Date: 20181217
  Transmission Date: 20190205
  Serious: No
  Sender: FDA-Public Use
  Company Number: US-NOVOPROD-571675

PATIENT
  Age: 15 Year
  Sex: Male

DRUGS (3)
  1. LEVEMIR [Suspect]
     Active Substance: INSULIN DETEMIR
     Dosage: 7 UNITS AM, 7 UNITS PM
     Route: 058
     Dates: start: 20171020, end: 20171029
  2. LEVEMIR [Suspect]
     Active Substance: INSULIN DETEMIR
     Indication: TYPE 1 DIABETES MELLITUS
     Dosage: 5 UNITS AM, 4 UNITS PM
     Route: 058
     Dates: start: 20170508, end: 20171019
  3. LEVEMIR [Suspect]
     Active Substance: INSULIN DETEMIR
     Dosage: 8 UNITS AM, 8 UNITS PM
     Route: 058
     Dates: start: 20171030

REACTIONS (6)
  - Eye pain [Recovered/Resolved]
  - Muscle twitching [Recovered/Resolved]
  - Headache [Recovered/Resolved]
  - Abnormal sensation in eye [Recovered/Resolved]
  - Lethargy [Recovered/Resolved]
  - Blood glucose increased [Recovered/Resolved]

NARRATIVE: CASE EVENT DATE: 2017
